FAERS Safety Report 8234172-8 (Version None)
Quarter: 2012Q1

REPORT INFORMATION
  Report Type: 
  Country: None (occurrence: None)
  Receive Date: 20120326
  Receipt Date: 20120315
  Transmission Date: 20120608
  Serious: Yes (Hospitalization)
  Sender: FDA-Public Use
  Company Number: US-BRISTOL-MYERS SQUIBB COMPANY-16416349

PATIENT
  Age: 50 Year
  Sex: Female
  Weight: 131 kg

DRUGS (11)
  1. SORAFENIB [Suspect]
     Indication: BREAST CANCER
     Dosage: COURSE NUMBER: 1.
     Route: 048
     Dates: start: 20100215, end: 20120217
  2. EXCEDRIN (MIGRAINE) [Concomitant]
     Indication: HEADACHE
     Dosage: 1DF=2TABS
     Dates: start: 20080101
  3. CELEBREX [Concomitant]
     Indication: ARTHRITIS
     Dates: start: 20100101
  4. FISH OIL [Concomitant]
     Indication: NUTRITIONAL SUPPORT
     Dates: start: 20100101
  5. PROPRANOLOL [Concomitant]
     Indication: HYPERTENSION
     Dates: start: 20080101
  6. VITAMIN D [Concomitant]
     Indication: NUTRITIONAL SUPPORT
     Dosage: 1DF=1000U
     Dates: start: 20080101
  7. GAS-X [Concomitant]
     Indication: FLATULENCE
     Dates: start: 20110101
  8. OMEPRAZOLE [Concomitant]
     Indication: GASTROOESOPHAGEAL REFLUX DISEASE
     Dates: start: 20110101
  9. IXABEPILONE [Suspect]
     Indication: BREAST CANCER
     Route: 042
     Dates: start: 20120215, end: 20120215
  10. ZOLOFT [Concomitant]
     Indication: MENOPAUSAL SYMPTOMS
     Dates: start: 20090101
  11. FERROUS SULFATE TAB [Concomitant]
     Indication: ANAEMIA
     Dates: start: 20110101

REACTIONS (2)
  - TUMOUR LYSIS SYNDROME [None]
  - RENAL FAILURE ACUTE [None]
